FAERS Safety Report 8563489-2 (Version None)
Quarter: 2012Q3

REPORT INFORMATION
  Report Type: 
  Country: None (occurrence: None)
  Receive Date: 20120802
  Receipt Date: 20120723
  Transmission Date: 20120928
  Serious: Yes (Other)
  Sender: FDA-Public Use
  Company Number: US-009507513-1207USA009907

PATIENT

DRUGS (14)
  1. HYDRALAZINE HCL [Suspect]
     Dosage: MATERNAL DOSE
     Route: 064
  2. ASPIRIN [Suspect]
     Dosage: MATERNAL DOSE
     Route: 064
  3. CARVEDILOL [Suspect]
     Dosage: MATERNAL DOSE
     Route: 064
  4. METOPROLOL TARTRATE [Suspect]
     Dosage: MATERNAL DOSE
     Route: 064
  5. CLOPIDOGREL [Suspect]
     Dosage: MATERNAL DOSE
     Route: 064
  6. ZOCOR [Suspect]
     Dosage: MATERNAL DOSE
     Route: 064
  7. FERROUS SULFATE TAB [Suspect]
     Dosage: MATERNAL DOSE
     Route: 064
  8. CARVEDILOL [Suspect]
     Dosage: MATERNAL DOSE
     Route: 064
  9. [COMPOSITION UNSPECIFIED] [Suspect]
     Route: 064
  10. MORPHINE SULFATE [Suspect]
     Route: 064
  11. CARVEDILOL [Suspect]
     Dosage: MATERNAL DOSE
     Route: 064
  12. HYDRALAZINE HCL [Suspect]
     Dosage: MATERNAL DOSE
     Route: 064
  13. HEPARIN [Suspect]
     Route: 064
  14. VITAMINS (UNSPECIFIED) [Suspect]
     Route: 064

REACTIONS (3)
  - FOETAL EXPOSURE DURING PREGNANCY [None]
  - PREMATURE BABY [None]
  - MATERNAL DRUGS AFFECTING FOETUS [None]
